FAERS Safety Report 6181178-9 (Version None)
Quarter: 2009Q2

REPORT INFORMATION
  Report Type: 
  Country: None (occurrence: None)
  Receive Date: 20090506
  Receipt Date: 20090429
  Transmission Date: 20091009
  Serious: Yes (Other)
  Sender: FDA-Public Use
  Company Number: IE-BAYER-200911450BNE

PATIENT
  Age: 70 Year
  Sex: Male

DRUGS (1)
  1. NEXAVAR [Suspect]
     Indication: RENAL CELL CARCINOMA
     Dates: start: 20080101, end: 20090401

REACTIONS (2)
  - EJECTION FRACTION DECREASED [None]
  - RENAL CELL CARCINOMA [None]
